FAERS Safety Report 9015031 (Version 1)
Quarter: 2013Q1

REPORT INFORMATION
  Report Type: Spontaneous
  Country: US (occurrence: None)
  Receive Date: 20130109
  Receipt Date: 20130109
  Transmission Date: 20140127
  Serious: Yes (Life-Threatening, Hospitalization)
  Sender: FDA-Public Use
  Company Number: None

PATIENT
  Age: 29 Year
  Sex: Female

DRUGS (1)
  1. MIRENA [Suspect]

REACTIONS (8)
  - Complication of device removal [None]
  - Post procedural haemorrhage [None]
  - Uterine perforation [None]
  - Adhesion [None]
  - Syncope [None]
  - Fatigue [None]
  - Muscle spasms [None]
  - Impaired work ability [None]
